FAERS Safety Report 5499395-X (Version None)
Quarter: 2007Q4

REPORT INFORMATION
  Report Type: 
  Country: None (occurrence: None)
  Receive Date: 20071026
  Receipt Date: 20071023
  Transmission Date: 20080405
  Serious: Yes (Disabling)
  Sender: FDA-Public Use
  Company Number: B0484925A

PATIENT
  Age: 64 Year
  Sex: Female
  Weight: 63 kg

DRUGS (8)
  1. ARIXTRA [Suspect]
     Indication: THROMBOSIS PROPHYLAXIS
     Dosage: 2.5MG PER DAY
     Route: 058
     Dates: start: 20070804, end: 20070806
  2. LOXONIN [Concomitant]
     Dosage: 180MG PER DAY
     Route: 048
     Dates: start: 20070804, end: 20070830
  3. MUCOSTA [Concomitant]
     Dosage: 300MG PER DAY
     Route: 048
     Dates: start: 20070804, end: 20070830
  4. FERROMIA [Concomitant]
     Dosage: 100MG PER DAY
     Route: 048
     Dates: start: 20070816, end: 20070830
  5. ZOLPIDEM [Concomitant]
     Indication: INSOMNIA
     Dosage: 5MG PER DAY
     Route: 048
     Dates: start: 20070816, end: 20070820
  6. LENDORMIN [Concomitant]
     Indication: INSOMNIA
     Dosage: .25MG PER DAY
     Route: 048
     Dates: start: 20070821, end: 20070914
  7. ADONA (AC-17) [Concomitant]
     Dosage: 30MG PER DAY
     Route: 048
     Dates: start: 20060411
  8. HYALEIN [Concomitant]
     Route: 031
     Dates: start: 20060411

REACTIONS (9)
  - FIBRIN D DIMER INCREASED [None]
  - HAEMATOCRIT DECREASED [None]
  - HAEMOGLOBIN DECREASED [None]
  - PLATELET COUNT INCREASED [None]
  - POST PROCEDURAL HAEMORRHAGE [None]
  - PROTEIN TOTAL DECREASED [None]
  - RED BLOOD CELL COUNT DECREASED [None]
  - VISION BLURRED [None]
  - VITREOUS HAEMORRHAGE [None]
